FAERS Safety Report 6150695-X (Version None)
Quarter: 2009Q2

REPORT INFORMATION
  Report Type: 
  Country: None (occurrence: None)
  Receive Date: 20090409
  Receipt Date: 20090403
  Transmission Date: 20091009
  Serious: Yes (Other)
  Sender: FDA-Public Use
  Company Number: PHEH2009US03362

PATIENT
  Age: 73 Year
  Sex: Female

DRUGS (2)
  1. RECLAST [Suspect]
     Indication: OSTEOPOROSIS
     Dosage: 5 MG, ONCE/SINGLE
     Dates: start: 20080520, end: 20080520
  2. PAMIDRONATE DISODIUM [Suspect]
     Indication: OSTEOPOROSIS
     Dosage: 30 MG, ONCE/SINGLE
     Dates: start: 20071113, end: 20071113

REACTIONS (4)
  - JAW DISORDER [None]
  - LOOSE TOOTH [None]
  - ORAL PAIN [None]
  - TOOTHACHE [None]
